FAERS Safety Report 8766403 (Version 3)
Quarter: 2013Q1

REPORT INFORMATION
  Report Type: Spontaneous
  Country: US (occurrence: US)
  Receive Date: 20120904
  Receipt Date: 20130213
  Transmission Date: 20140127
  Serious: Yes (Death, Hospitalization, Other)
  Sender: FDA-Public Use
  Company Number: US-JNJFOC-20120814853

PATIENT
  Age: 61 None
  Sex: Female
  Weight: 72.6 kg

DRUGS (38)
  1. EXALGO [Suspect]
     Indication: OSTEOARTHRITIS
     Dosage: INITIATED ON NOV-2011 OR DEC-2011
     Route: 048
     Dates: start: 2011, end: 20120520
  2. EXALGO [Suspect]
     Indication: FIBROMYALGIA
     Dosage: INITIATED ON NOV-2011 OR DEC-2011
     Route: 048
     Dates: start: 2011, end: 20120520
  3. DURAGESIC [Suspect]
     Indication: PAIN
     Route: 062
     Dates: end: 20120520
  4. DURAGESIC [Suspect]
     Indication: PAIN
     Dosage: 100/50 MCG/HR EVERY 48 HOUR PATCHES
     Route: 062
     Dates: end: 20120520
  5. DURAGESIC [Suspect]
     Indication: PAIN
     Route: 062
     Dates: start: 20120521
  6. NUCYNTA ER [Concomitant]
     Indication: PAIN
     Route: 048
     Dates: start: 20120521
  7. FLEXERIL [Concomitant]
     Route: 065
  8. NUCYNTA [Concomitant]
     Route: 048
     Dates: end: 201204
  9. MSM [Concomitant]
     Route: 065
  10. LOVENOX [Concomitant]
     Route: 065
  11. COUMADIN [Concomitant]
     Route: 065
     Dates: start: 2000, end: 201205
  12. FIORICET (BUTALBITAL ACETAMINOPHEN CAFFEINE) [Concomitant]
     Route: 065
     Dates: start: 201111, end: 201205
  13. PHENERGAN [Concomitant]
     Route: 065
  14. FOLIC ACID [Concomitant]
     Route: 065
  15. LASIX [Concomitant]
     Route: 065
  16. LEVOTHYROXINE [Concomitant]
     Route: 065
  17. PROTONIX [Concomitant]
     Route: 065
  18. LUNESTA [Concomitant]
     Route: 065
  19. CRESTOR [Concomitant]
     Route: 065
  20. ZETIA [Concomitant]
     Route: 065
     Dates: end: 201205
  21. ALLEGRA [Concomitant]
     Route: 065
  22. AZELASTINE HYDROCHLORIDE [Concomitant]
     Route: 065
  23. B COMPLEX WITH VITAMIN C [Concomitant]
     Route: 065
  24. CALCIUM WITH VITAMIN D [Concomitant]
     Route: 065
  25. CYMBALTA [Concomitant]
     Route: 065
  26. DULCOLAX [Concomitant]
     Route: 065
  27. FLONASE [Concomitant]
     Route: 065
  28. UNKNOWN MEDICATION [Concomitant]
     Route: 065
  29. KLOR CON [Concomitant]
     Route: 065
  30. METOPROLOL TARTRATE [Concomitant]
     Route: 065
  31. MAALOX [Concomitant]
     Route: 065
  32. RAMIPRIL [Concomitant]
     Route: 065
  33. SENNA S [Concomitant]
     Route: 065
  34. SINGULAIR [Concomitant]
     Route: 065
  35. SLOW FE [Concomitant]
     Route: 065
  36. UNKNOWN MEDICATION [Concomitant]
     Route: 065
  37. UNKNOWN MEDICATION [Concomitant]
     Route: 065
  38. ZEGERID [Concomitant]
     Route: 065

REACTIONS (11)
  - Respiratory failure [Fatal]
  - Cardiac arrest [Fatal]
  - Cardiac failure [Fatal]
  - Hypoxic-ischaemic encephalopathy [Fatal]
  - Grand mal convulsion [Fatal]
  - Migraine [Recovered/Resolved]
  - Intentional drug misuse [Unknown]
  - Drug dose omission [Unknown]
  - Withdrawal syndrome [Unknown]
  - Unresponsive to stimuli [Unknown]
  - Pain [Unknown]
